FAERS Safety Report 7307540-6 (Version None)
Quarter: 2011Q1

REPORT INFORMATION
  Report Type: 
  Country: None (occurrence: None)
  Receive Date: 20110223
  Receipt Date: 20110215
  Transmission Date: 20110831
  Serious: No
  Sender: FDA-Public Use
  Company Number: US-JNJFOC-20110204924

PATIENT
  Sex: Female
  Weight: 66.68 kg

DRUGS (2)
  1. DURAGESIC-50 [Suspect]
     Indication: RHEUMATOID ARTHRITIS
     Route: 062
  2. UNKNOWN MEDICATION [Concomitant]

REACTIONS (3)
  - PRODUCT ADHESION ISSUE [None]
  - WRONG TECHNIQUE IN DRUG USAGE PROCESS [None]
  - BODY HEIGHT DECREASED [None]
